FAERS Safety Report 6768841-3 (Version None)
Quarter: 2010Q2

REPORT INFORMATION
  Report Type: 
  Country: None (occurrence: None)
  Receive Date: 20100614
  Receipt Date: 20100604
  Transmission Date: 20101027
  Serious: Yes (Life-Threatening, Other)
  Sender: FDA-Public Use
  Company Number: GB-AMGEN-US334246

PATIENT
  Age: 80 Year
  Sex: Male
  Weight: 70 kg

DRUGS (8)
  1. ENBREL [Suspect]
     Indication: RHEUMATOID ARTHRITIS
     Route: 058
     Dates: start: 20060801, end: 20061101
  2. HUMIRA [Suspect]
     Indication: RHEUMATOID ARTHRITIS
     Route: 058
     Dates: start: 20061215, end: 20070815
  3. FERROUS SULFATE TAB [Concomitant]
     Route: 048
  4. PARACETAMOL [Concomitant]
     Dosage: UNKNOWN
     Dates: start: 20070109
  5. OMEPRAZOLE [Concomitant]
     Route: 048
  6. SULFASALAZINE [Concomitant]
     Indication: RHEUMATOID ARTHRITIS
     Route: 048
  7. CALCICHEW [Concomitant]
     Dosage: UNKNOWN
     Dates: start: 20070109
  8. IBUPROFEN [Concomitant]
     Route: 048

REACTIONS (3)
  - COLON ADENOMA [None]
  - DISEASE PROGRESSION [None]
  - LUNG ADENOCARCINOMA [None]
